FAERS Safety Report 4739600-8 (Version None)
Quarter: 2005Q3

REPORT INFORMATION
  Report Type: 
  Country: None (occurrence: None)
  Receive Date: 20050810
  Receipt Date: 20050411
  Transmission Date: 20060218
  Serious: No
  Sender: FDA-Public Use
  Company Number: US-GLAXOSMITHKLINE-A0553572A

PATIENT
  Sex: Male

DRUGS (5)
  1. PAXIL [Suspect]
     Dosage: 1TAB PER DAY
     Route: 048
  2. WELLBUTRIN [Suspect]
     Indication: ANXIETY
     Dosage: 150MG TWICE PER DAY
     Route: 048
  3. COZAAR [Concomitant]
  4. ULTRAM [Concomitant]
  5. BLOOD THINNER [Concomitant]

REACTIONS (3)
  - FATIGUE [None]
  - IRRITABILITY [None]
  - WEIGHT INCREASED [None]
